FAERS Safety Report 7495258-9 (Version None)
Quarter: 2011Q2

REPORT INFORMATION
  Report Type: 
  Country: None (occurrence: None)
  Receive Date: 20110522
  Receipt Date: 20110509
  Transmission Date: 20111010
  Serious: Yes (Other)
  Sender: FDA-Public Use
  Company Number: GB-MYLANLABS-2011S1009621

PATIENT
  Age: 46 Year
  Sex: Male

DRUGS (7)
  1. GINKO BILOBA [Suspect]
     Indication: PRODUCT USED FOR UNKNOWN INDICATION
  2. ACETAMINOPHEN [Suspect]
     Indication: ANALGESIC THERAPY
  3. IBUPROFEN [Suspect]
     Indication: ANALGESIC THERAPY
  4. GINSENG [Suspect]
     Indication: PRODUCT USED FOR UNKNOWN INDICATION
  5. VITAMINS NOS [Suspect]
     Indication: PRODUCT USED FOR UNKNOWN INDICATION
  6. GARLIC [Suspect]
     Indication: PRODUCT USED FOR UNKNOWN INDICATION
  7. GINGER [Suspect]
     Indication: PRODUCT USED FOR UNKNOWN INDICATION

REACTIONS (2)
  - POST PROCEDURAL HAEMORRHAGE [None]
  - DRUG INTERACTION [None]
